FAERS Safety Report 21644675 (Version 1)
Quarter: 2022Q4

REPORT INFORMATION
  Report Type: Spontaneous
  Country: RO (occurrence: RO)
  Receive Date: 20221125
  Receipt Date: 20221125
  Transmission Date: 20230112
  Serious: Yes (Life-Threatening)
  Sender: FDA-Public Use
  Company Number: RO-TAKEDA-2022TUS089215

PATIENT
  Age: 22 Year
  Sex: Female

DRUGS (1)
  1. ADCETRIS [Suspect]
     Active Substance: BRENTUXIMAB VEDOTIN
     Indication: Lymphoma
     Dosage: UNK
     Route: 065
     Dates: start: 20221121, end: 20221121

REACTIONS (2)
  - Hypersensitivity [Recovered/Resolved]
  - Dermatitis allergic [Unknown]
